FAERS Safety Report 12853957 (Version 4)
Quarter: 2016Q4

REPORT INFORMATION
  Report Type: Report from Study
  Country: US (occurrence: US)
  Receive Date: 20161017
  Receipt Date: 20161219
  Transmission Date: 20170207
  Serious: Yes (Death, Hospitalization, Other)
  Sender: FDA-Public Use
  Company Number: US-ALEXION PHARMACEUTICALS INC-A201607704

PATIENT
  Sex: Female

DRUGS (1)
  1. SOLIRIS [Suspect]
     Active Substance: ECULIZUMAB
     Indication: HAEMOLYTIC URAEMIC SYNDROME
     Dosage: 1200 MG, QW
     Route: 042
     Dates: start: 20160927, end: 20161005

REACTIONS (11)
  - Adenocarcinoma [Unknown]
  - Vision blurred [Unknown]
  - Dehydration [Unknown]
  - Fluid overload [Unknown]
  - Inappropriate schedule of drug administration [Unknown]
  - Thrombosis [Unknown]
  - Transient ischaemic attack [Unknown]
  - Diplopia [Unknown]
  - Hepatic cancer metastatic [Fatal]
  - Full blood count decreased [Unknown]
  - Disseminated intravascular coagulation [Unknown]

NARRATIVE: CASE EVENT DATE: 20160927
